FAERS Safety Report 8933648 (Version 1)
Quarter: 2012Q4

REPORT INFORMATION
  Report Type: Report from Study
  Country: US (occurrence: US)
  Receive Date: 20121129
  Receipt Date: 20121129
  Transmission Date: 20130627
  Serious: Yes (Hospitalization)
  Sender: FDA-Public Use
  Company Number: US-ROCHE-1157463

PATIENT
  Age: 81 Year
  Sex: Female
  Weight: 45.49 kg

DRUGS (10)
  1. BEVACIZUMAB [Suspect]
     Indication: BILE DUCT CANCER
     Route: 065
     Dates: start: 20120731
  2. GEMCITABINE [Suspect]
     Indication: BILE DUCT CANCER
     Dosage: Day 1 and 8 of 21 days cycle
     Route: 065
     Dates: start: 20120731
  3. CAPECITABINE [Suspect]
     Indication: BILE DUCT CANCER
     Dosage: days 1-15 of each cycle
     Route: 065
     Dates: start: 20120731
  4. ESOMEPRAZOLE [Concomitant]
     Route: 065
     Dates: start: 20121025
  5. ONDANSETRON [Concomitant]
     Route: 065
     Dates: start: 20120906
  6. DOCUSATE [Concomitant]
     Route: 065
     Dates: start: 20120625
  7. LEVOTHYROXINE [Concomitant]
  8. OXYCODONE [Concomitant]
     Route: 065
     Dates: start: 20120625
  9. CALCIUM CITRATE [Concomitant]
  10. CARVEDILOL [Concomitant]

REACTIONS (2)
  - Renal failure acute [Unknown]
  - Dehydration [Unknown]
